FAERS Safety Report 25083205 (Version 1)
Quarter: 2025Q1

REPORT INFORMATION
  Report Type: Spontaneous
  Country: ES (occurrence: ES)
  Receive Date: 20250317
  Receipt Date: 20250317
  Transmission Date: 20250408
  Serious: Yes (Other)
  Sender: ARTHUR GROUP LLC
  Company Number: ES-ARTHUR-2025AGLIT00003

PATIENT
  Age: 5 Year
  Sex: Female

DRUGS (14)
  1. MELPHALAN [Suspect]
     Active Substance: MELPHALAN
     Indication: Congenital retinoblastoma
     Route: 013
  2. MELPHALAN [Suspect]
     Active Substance: MELPHALAN
     Indication: Congenital retinoblastoma
  3. TOPOTECAN [Suspect]
     Active Substance: TOPOTECAN HYDROCHLORIDE
     Indication: Congenital retinoblastoma
     Route: 013
  4. TOPOTECAN [Suspect]
     Active Substance: TOPOTECAN HYDROCHLORIDE
     Route: 035
  5. TOPOTECAN [Suspect]
     Active Substance: TOPOTECAN HYDROCHLORIDE
     Route: 037
  6. VINCRISTINE [Concomitant]
     Active Substance: VINCRISTINE
     Indication: Salvage therapy
     Route: 042
  7. VINCRISTINE [Concomitant]
     Active Substance: VINCRISTINE
     Route: 042
  8. CYCLOPHOSPHAMIDE [Concomitant]
     Active Substance: CYCLOPHOSPHAMIDE
     Indication: Salvage therapy
     Route: 042
  9. ETOPOSIDE [Concomitant]
     Active Substance: ETOPOSIDE
     Indication: Salvage therapy
     Route: 065
  10. ETOPOSIDE [Concomitant]
     Active Substance: ETOPOSIDE
     Route: 065
  11. ETOPOSIDE [Concomitant]
     Active Substance: ETOPOSIDE
     Route: 042
  12. THIOTEPA [Concomitant]
     Active Substance: THIOTEPA
     Indication: Salvage therapy
     Dosage: 1 DAY
     Route: 065
  13. NAXITAMAB [Concomitant]
     Active Substance: NAXITAMAB
     Indication: Salvage therapy
     Dosage: DAYS 1, 3, 5
     Route: 065
  14. SARGRAMOSTIM [Concomitant]
     Active Substance: SARGRAMOSTIM
     Indication: Salvage therapy
     Dosage: DAYS 0-5
     Route: 065

REACTIONS (6)
  - Retinal detachment [Unknown]
  - Glaucoma [Unknown]
  - Deafness [Unknown]
  - Product use issue [Unknown]
  - Product use issue [Unknown]
  - Product use in unapproved indication [Unknown]
